FAERS Safety Report 20125185 (Version 1)
Quarter: 2021Q4

REPORT INFORMATION
  Report Type: Spontaneous
  Country: JP (occurrence: JP)
  Receive Date: 20211129
  Receipt Date: 20211129
  Transmission Date: 20220303
  Serious: Yes (Other)
  Sender: FDA-Public Use
  Company Number: JP-HQ SPECIALTY-JP-2021INT000223

PATIENT
  Sex: Female

DRUGS (3)
  1. CISPLATIN [Suspect]
     Active Substance: CISPLATIN
     Indication: Adenocarcinoma of the cervix
     Dosage: 40 MG/M2, UP TO FIVE COURSES
     Route: 041
  2. RADIATION THERAPY [Suspect]
     Active Substance: RADIATION THERAPY
     Indication: Adenocarcinoma of the cervix
     Dosage: TOTAL DOSE OF 36.0 GY TO THE CERVICAL TUMOR
     Route: 065
  3. LAXATIVE                           /00064401/ [Concomitant]
     Indication: Prophylaxis
     Dosage: UNK
     Route: 065

REACTIONS (1)
  - Gastrointestinal toxicity [Unknown]
